FAERS Safety Report 5061451-8 (Version None)
Quarter: 2006Q3

REPORT INFORMATION
  Report Type: 
  Country: None (occurrence: None)
  Receive Date: 20060720
  Receipt Date: 20060720
  Transmission Date: 20061208
  Serious: No
  Sender: FDA-Public Use
  Company Number: None

PATIENT
  Age: 50 Year
  Sex: Male
  Weight: 90.7194 kg

DRUGS (2)
  1. XALATAN [Suspect]
     Indication: GLAUCOMA
     Dosage: 1 DROP DAILY
  2. LUMIGAN [Suspect]
     Indication: GLAUCOMA
     Dosage: 1 DROP DAILY

REACTIONS (2)
  - INTRAOCULAR PRESSURE INCREASED [None]
  - IRITIS [None]
